FAERS Safety Report 9249620 (Version 1)
Quarter: 2013Q2

REPORT INFORMATION
  Report Type: Spontaneous
  Country: US (occurrence: US)
  Receive Date: 20130423
  Receipt Date: 20130423
  Transmission Date: 20140414
  Serious: Yes (Death, Other)
  Sender: FDA-Public Use
  Company Number: US-BRISTOL-MYERS SQUIBB COMPANY-17348129

PATIENT
  Age: 61 Year
  Sex: Female

DRUGS (3)
  1. YERVOY [Suspect]
     Indication: MALIGNANT MELANOMA
     Route: 042
     Dates: start: 20130121, end: 20130121
  2. HEPARIN [Concomitant]
     Indication: THROMBOSIS
  3. DECADRON [Concomitant]

REACTIONS (8)
  - Malignant neoplasm progression [Fatal]
  - Adrenal insufficiency [Not Recovered/Not Resolved]
  - Pruritus [Unknown]
  - Rash [Unknown]
  - Nausea [Unknown]
  - Constipation [Unknown]
  - Headache [Unknown]
  - Weight fluctuation [Unknown]
